FAERS Safety Report 7534698-6 (Version None)
Quarter: 2011Q2

REPORT INFORMATION
  Report Type: 
  Country: None (occurrence: None)
  Receive Date: 20110609
  Receipt Date: 20110520
  Transmission Date: 20111010
  Serious: Yes (Hospitalization, Other)
  Sender: FDA-Public Use
  Company Number: PHHY2011US47657

PATIENT
  Age: 85 Year
  Sex: Female

DRUGS (8)
  1. NORVASC [Suspect]
     Dates: end: 20110511
  2. SEROQUEL [Suspect]
     Indication: DEMENTIA WITH LEWY BODIES
  3. FUROSEMIDE [Suspect]
     Dosage: 40 MG, UNK
     Dates: end: 20110511
  4. METOPROLOL [Concomitant]
  5. DIOVAN [Suspect]
  6. EXELON [Concomitant]
  7. NAMENDA [Concomitant]
  8. MICARDIS [Concomitant]

REACTIONS (7)
  - FEELING ABNORMAL [None]
  - JOINT SWELLING [None]
  - WEIGHT INCREASED [None]
  - DEMENTIA WITH LEWY BODIES [None]
  - DEMENTIA [None]
  - TREMOR [None]
  - FLUID RETENTION [None]
